FAERS Safety Report 11578375 (Version 2)
Quarter: 2015Q4

REPORT INFORMATION
  Report Type: Spontaneous
  Country: US (occurrence: US)
  Receive Date: 20150930
  Receipt Date: 20151208
  Transmission Date: 20160304
  Serious: Yes (Hospitalization)
  Sender: FDA-Public Use
  Company Number: US-SMITH AND NEPHEW, INC-2015SMT00351

PATIENT
  Age: 68 Year
  Sex: Male
  Weight: 109.75 kg

DRUGS (14)
  1. COREG [Concomitant]
     Active Substance: CARVEDILOL
     Dosage: 6.25 MG, 2X/DAY
     Route: 048
  2. XANAX [Concomitant]
     Active Substance: ALPRAZOLAM
     Dosage: 1 MG, 1X/DAY
     Route: 048
  3. ZOCOR [Concomitant]
     Active Substance: SIMVASTATIN
     Indication: BLOOD CHOLESTEROL
     Dosage: 10 MG, 1X/DAY
     Route: 048
  4. UNSPECIFIED DEPRESSION MEDICATION [Concomitant]
     Active Substance: UNSPECIFIED INGREDIENT
     Indication: DEPRESSION
     Dosage: UNK
  5. COUMADIN [Concomitant]
     Active Substance: WARFARIN SODIUM
     Dosage: 10 MG, 1X/DAY
     Route: 048
  6. LEXAPRO [Concomitant]
     Active Substance: ESCITALOPRAM OXALATE
     Dosage: 20 MG, 1X/DAY
     Route: 048
  7. REGRANEX [Suspect]
     Active Substance: BECAPLERMIN
     Indication: DIABETIC ULCER
     Dosage: UNK
     Route: 061
     Dates: start: 201508, end: 20150821
  8. HUMALOG [Concomitant]
     Active Substance: INSULIN LISPRO
  9. UNSPECIFIED THYROID MEDICATION [Concomitant]
     Active Substance: UNSPECIFIED INGREDIENT
     Indication: THYROID DISORDER
     Dosage: UNK
  10. UNSPECIFIED BLOOD PRESSURE MEDICATION [Concomitant]
     Active Substance: UNSPECIFIED INGREDIENT
     Indication: BLOOD PRESSURE MEASUREMENT
     Dosage: UNK
  11. LANOXIN [Concomitant]
     Active Substance: DIGOXIN
     Dosage: 0.125 MG, 1X/DAY
     Route: 048
  12. UNSPECIFIED ANXIETY MEDICATION [Concomitant]
     Indication: ANXIETY
     Dosage: UNK
  13. FOLIC ACID. [Concomitant]
     Active Substance: FOLIC ACID
     Dosage: 1 MG, 1X/DAY
     Route: 048
  14. VITAMIN D [Concomitant]
     Active Substance: CHOLECALCIFEROL
     Dosage: 2000 U, 1X/DAY
     Route: 048

REACTIONS (17)
  - Sepsis [Recovered/Resolved]
  - Urinary tract infection [Recovered/Resolved]
  - Cardiomyopathy [Unknown]
  - Asthenia [Recovering/Resolving]
  - Suicidal ideation [Recovered/Resolved]
  - Diarrhoea [Recovered/Resolved]
  - Pulseless electrical activity [Recovering/Resolving]
  - Cellulitis [Recovered/Resolved]
  - Hepatic encephalopathy [Recovered/Resolved]
  - Wound drainage [Not Recovered/Not Resolved]
  - Blister [Recovering/Resolving]
  - Blood glucose increased [Recovering/Resolving]
  - Acute respiratory failure [Recovered/Resolved]
  - Peripheral swelling [Recovering/Resolving]
  - Pneumonia [Recovered/Resolved]
  - International normalised ratio increased [Recovering/Resolving]
  - Cardiac failure congestive [Unknown]

NARRATIVE: CASE EVENT DATE: 20150818
